FAERS Safety Report 12402212 (Version 1)
Quarter: 2016Q2

REPORT INFORMATION
  Report Type: Report from Study
  Country: ZA (occurrence: ZA)
  Receive Date: 20160525
  Receipt Date: 20160525
  Transmission Date: 20160815
  Serious: Yes (Death, Hospitalization, Other)
  Sender: FDA-Public Use
  Company Number: ZA-AMGEN-ZAFSL2016064973

PATIENT
  Age: 78 Year
  Sex: Male

DRUGS (1)
  1. ARANESP [Suspect]
     Active Substance: DARBEPOETIN ALFA
     Indication: CHRONIC KIDNEY DISEASE
     Dosage: 60 MCG, Q2WK
     Route: 058
     Dates: start: 201309

REACTIONS (3)
  - Atrial fibrillation [Unknown]
  - Intestinal perforation [Unknown]
  - Death [Fatal]

NARRATIVE: CASE EVENT DATE: 20160516
